FAERS Safety Report 7674475-9 (Version None)
Quarter: 2011Q3

REPORT INFORMATION
  Report Type: 
  Country: None (occurrence: None)
  Receive Date: 20110810
  Receipt Date: 20110801
  Transmission Date: 20111222
  Serious: Yes (Hospitalization)
  Sender: FDA-Public Use
  Company Number: JP-ROCHE-765842

PATIENT
  Sex: Female

DRUGS (42)
  1. TOCILIZUMAB [Suspect]
     Indication: RHEUMATOID ARTHRITIS
     Route: 041
     Dates: start: 20080627, end: 20080627
  2. TOCILIZUMAB [Suspect]
     Route: 041
     Dates: start: 20080917, end: 20080917
  3. TOCILIZUMAB [Suspect]
     Route: 041
     Dates: start: 20090114, end: 20090114
  4. TOCILIZUMAB [Suspect]
     Route: 041
     Dates: start: 20090212, end: 20090212
  5. TOCILIZUMAB [Suspect]
     Route: 041
     Dates: start: 20090827, end: 20090827
  6. PREDNISOLONE [Suspect]
     Indication: RHEUMATOID ARTHRITIS
     Route: 048
     Dates: end: 20091022
  7. PREDNISOLONE [Suspect]
     Route: 048
     Dates: start: 20100115, end: 20100626
  8. CANDESARTAN CILEXETIL [Concomitant]
     Route: 048
     Dates: start: 20090627, end: 20100626
  9. TOCILIZUMAB [Suspect]
     Route: 041
     Dates: start: 20080723, end: 20080723
  10. TOCILIZUMAB [Suspect]
     Route: 041
     Dates: start: 20090408, end: 20090408
  11. TOCILIZUMAB [Suspect]
     Route: 041
     Dates: start: 20090702, end: 20090702
  12. TOCILIZUMAB [Suspect]
     Route: 041
     Dates: start: 20091119, end: 20091119
  13. AZULFIDINE [Concomitant]
     Dosage: FORM: ENTERIC COATED DRUG
     Route: 048
  14. TOCILIZUMAB [Suspect]
     Route: 041
     Dates: start: 20081113, end: 20081113
  15. TOCILIZUMAB [Suspect]
     Route: 041
     Dates: start: 20090922, end: 20090922
  16. TOCILIZUMAB [Suspect]
     Route: 041
     Dates: start: 20100311, end: 20100311
  17. FERROUS CITRATE [Concomitant]
     Route: 048
  18. MAGMITT [Concomitant]
     Route: 048
  19. FUROSEMIDE [Concomitant]
     Dosage: FORM: PERORAL AGENT
     Route: 048
  20. TOCILIZUMAB [Suspect]
     Route: 041
     Dates: start: 20080820, end: 20080820
  21. TOCILIZUMAB [Suspect]
     Route: 041
     Dates: start: 20090730, end: 20090730
  22. TOCILIZUMAB [Suspect]
     Route: 041
     Dates: start: 20100114, end: 20100114
  23. TOCILIZUMAB [Suspect]
     Route: 041
     Dates: start: 20100210, end: 20100210
  24. TOCILIZUMAB [Suspect]
     Route: 041
     Dates: start: 20100603
  25. ISALON [Concomitant]
     Dosage: FORM: PERORAL AGENT
     Route: 048
  26. TOCILIZUMAB [Suspect]
     Route: 041
     Dates: start: 20090507, end: 20090507
  27. TOCILIZUMAB [Suspect]
     Route: 041
     Dates: start: 20091022, end: 20091022
  28. URSO 250 [Concomitant]
     Dosage: FORM: PERORAL AGENT
     Route: 048
  29. NIZATIDINE [Concomitant]
     Route: 048
     Dates: start: 20090627, end: 20100626
  30. VOLTAREN [Concomitant]
     Route: 054
  31. TOCILIZUMAB [Suspect]
     Route: 041
     Dates: start: 20081015, end: 20081015
  32. TOCILIZUMAB [Suspect]
     Route: 041
     Dates: start: 20081210, end: 20081210
  33. TOCILIZUMAB [Suspect]
     Route: 041
     Dates: start: 20090604, end: 20090604
  34. TOCILIZUMAB [Suspect]
     Route: 041
     Dates: start: 20091217, end: 20091217
  35. TOCILIZUMAB [Suspect]
     Route: 041
     Dates: start: 20100408, end: 20100408
  36. PREDNISOLONE [Suspect]
     Route: 048
     Dates: start: 20091023, end: 20100114
  37. FUROSEMIDE [Concomitant]
     Dosage: FORM: PERORAL AGENT
     Route: 048
     Dates: start: 20090627, end: 20100626
  38. CANDESARTAN CILEXETIL [Concomitant]
     Route: 048
  39. TOCILIZUMAB [Suspect]
     Route: 041
     Dates: start: 20090312, end: 20090312
  40. TOCILIZUMAB [Suspect]
     Route: 041
     Dates: start: 20100506, end: 20100506
  41. NIZATIDINE [Concomitant]
     Dosage: FORM: PERORAL AGENT
     Route: 048
  42. DEPAS [Concomitant]
     Dosage: FORM: PERORAL AGENT
     Route: 048

REACTIONS (7)
  - BILE DUCT STONE [None]
  - OXYGEN SATURATION DECREASED [None]
  - HYPERTENSION [None]
  - CELLULITIS [None]
  - BACTERAEMIA [None]
  - CHOLANGITIS ACUTE [None]
  - ANAEMIA [None]
